FAERS Safety Report 9305260 (Version 1)
Quarter: 2013Q2

REPORT INFORMATION
  Report Type: Spontaneous
  Country: GB (occurrence: None)
  Receive Date: 20130520
  Receipt Date: 20130520
  Transmission Date: 20140414
  Serious: Yes (Life-Threatening)
  Sender: FDA-Public Use
  Company Number: 2013AP005318

PATIENT
  Age: 66 Year
  Sex: Female

DRUGS (4)
  1. RAMIPRIL (RAMIPRIL) [Suspect]
     Indication: HYPERTENSION
  2. METFORMIN (METFORMIN) [Suspect]
     Indication: TYPE 2 DIABETES MELLITUS
  3. BENDROFLUMETHIAZIDE (BENDROFLUMETHIAZIDE) [Concomitant]
  4. SIMVASTATIN (SIMVASTATIN) [Concomitant]

REACTIONS (10)
  - Cellulitis [None]
  - Sepsis [None]
  - Lactic acidosis [None]
  - Toxicity to various agents [None]
  - Shock [None]
  - Cardiac arrest [None]
  - Hypotension [None]
  - Adenocarcinoma of colon [None]
  - Continuous haemodiafiltration [None]
  - Renal failure acute [None]
